FAERS Safety Report 6734463-3 (Version None)
Quarter: 2010Q2

REPORT INFORMATION
  Report Type: 
  Country: None (occurrence: None)
  Receive Date: 20100520
  Receipt Date: 20100510
  Transmission Date: 20101027
  Serious: Yes (Other)
  Sender: FDA-Public Use
  Company Number: US-JNJCH-2010010016

PATIENT
  Age: 84 Year
  Sex: Female
  Weight: 45.4 kg

DRUGS (2)
  1. LISTERINE ANTISEPTIC MOUTHWASH [Suspect]
     Indication: INTENTIONAL DRUG MISUSE
     Dosage: TEXT:UNSPECIFIED
     Route: 048
  2. COUMADIN [Concomitant]
     Indication: DRUG USE FOR UNKNOWN INDICATION
     Dosage: TEXT:UNKNOWN
     Route: 065

REACTIONS (2)
  - DRUG ABUSE [None]
  - INCORRECT ROUTE OF DRUG ADMINISTRATION [None]
